FAERS Safety Report 8410425-5 (Version None)
Quarter: 2012Q2

REPORT INFORMATION
  Report Type: 
  Country: None (occurrence: None)
  Receive Date: 20120605
  Receipt Date: 20120524
  Transmission Date: 20120825
  Serious: No
  Sender: FDA-Public Use
  Company Number: US-BAYER-2012-053185

PATIENT

DRUGS (3)
  1. ALEVE (CAPLET) [Suspect]
     Indication: HEADACHE
  2. IBUPROFEN (ADVIL) [Concomitant]
  3. ACETAMINOPHEN [Concomitant]

REACTIONS (1)
  - HEADACHE [None]
